FAERS Safety Report 4650875-6 (Version None)
Quarter: 2005Q2

REPORT INFORMATION
  Report Type: 
  Country: None (occurrence: None)
  Receive Date: 20050503
  Receipt Date: 20050421
  Transmission Date: 20051028
  Serious: Yes (Other)
  Sender: FDA-Public Use
  Company Number: JP-JNJFOC-20040300493

PATIENT
  Sex: Female
  Weight: 40 kg

DRUGS (6)
  1. REMICADE [Suspect]
     Route: 042
     Dates: start: 20030917
  2. REMICADE [Suspect]
     Route: 042
     Dates: start: 20030917
  3. REMICADE [Suspect]
     Indication: FISTULA
     Route: 042
     Dates: start: 20030917
  4. REMICADE [Suspect]
     Indication: CROHN'S DISEASE
     Route: 042
     Dates: start: 20030917
  5. PENTASA [Concomitant]
     Route: 049
  6. TPN [Concomitant]

REACTIONS (3)
  - AGRANULOCYTOSIS [None]
  - LEUKOPENIA [None]
  - LIVER FUNCTION TEST ABNORMAL [None]
